FAERS Safety Report 19997597 (Version 4)
Quarter: 2022Q3

REPORT INFORMATION
  Report Type: Spontaneous
  Country: US (occurrence: US)
  Receive Date: 20211026
  Receipt Date: 20220722
  Transmission Date: 20221027
  Serious: Yes (Hospitalization, Other)
  Sender: FDA-Public Use
  Company Number: US-GW PHARMA-202110USGW05202

PATIENT
  Sex: Male

DRUGS (3)
  1. EPIDIOLEX [Suspect]
     Active Substance: CANNABIDIOL
     Indication: Lennox-Gastaut syndrome
     Dosage: 720 MILLIGRAM
     Route: 048
     Dates: start: 202010
  2. EPIDIOLEX [Suspect]
     Active Substance: CANNABIDIOL
     Indication: Status epilepticus
     Dosage: 3.6 MILLILITER, BID VIA G-TUBE
     Route: 048
     Dates: start: 201903
  3. EPIDIOLEX [Suspect]
     Active Substance: CANNABIDIOL
     Dosage: 3.2 MILLILITER, BID
     Dates: start: 20220610

REACTIONS (6)
  - Pneumonia [Unknown]
  - Lung abscess [Recovered/Resolved]
  - Seizure [Unknown]
  - Product dose omission issue [Unknown]
  - Product supply issue [Unknown]
  - Insurance issue [Unknown]

NARRATIVE: CASE EVENT DATE: 20210101
